FAERS Safety Report 12274618 (Version 1)
Quarter: 2016Q2

REPORT INFORMATION
  Report Type: Spontaneous
  Country: US (occurrence: US)
  Receive Date: 20160415
  Receipt Date: 20160415
  Transmission Date: 20160815
  Serious: No
  Sender: FDA-Public Use
  Company Number: US-ALLERGAN-1507035US

PATIENT
  Age: 51 Year
  Sex: Female
  Weight: 65.76 kg

DRUGS (4)
  1. LATISSE [Suspect]
     Active Substance: BIMATOPROST
     Indication: GROWTH OF EYELASHES
     Dosage: ONCE AT BED TIME BOTH EYE, QHS
     Route: 003
     Dates: start: 2012, end: 20150305
  2. ZETIA [Concomitant]
     Active Substance: EZETIMIBE
     Indication: BLOOD CHOLESTEROL
     Dosage: 20 MG, QD
     Route: 048
     Dates: start: 2008
  3. SINGULAIR [Concomitant]
     Active Substance: MONTELUKAST SODIUM
     Indication: HYPERSENSITIVITY
     Dosage: UNK
     Route: 048
     Dates: start: 2011
  4. CYMBALTA [Concomitant]
     Active Substance: DULOXETINE HYDROCHLORIDE
     Indication: ANXIETY
     Dosage: 60 MG, UNK
     Route: 048
     Dates: start: 2010

REACTIONS (3)
  - Headache [Recovered/Resolved]
  - Insomnia [Recovered/Resolved]
  - Dark circles under eyes [Recovered/Resolved]

NARRATIVE: CASE EVENT DATE: 201408
